FAERS Safety Report 5835482-1 (Version None)
Quarter: 2008Q3

REPORT INFORMATION
  Report Type: 
  Country: None (occurrence: None)
  Receive Date: 20080806
  Receipt Date: 20080730
  Transmission Date: 20090109
  Serious: Yes (Other)
  Sender: FDA-Public Use
  Company Number: US-JNJCH-2008020002

PATIENT
  Sex: Female
  Weight: 49.9 kg

DRUGS (1)
  1. LUBRIDERM INTENSE REPAIR BODY LOTION [Suspect]
     Indication: DRUG USE FOR UNKNOWN INDICATION
     Dosage: TEXT:UNSPECIFIED
     Route: 047

REACTIONS (3)
  - ACCIDENTAL EXPOSURE [None]
  - FACE INJURY [None]
  - METAMORPHOPSIA [None]
